FAERS Safety Report 13903046 (Version 1)
Quarter: 2017Q3

REPORT INFORMATION
  Report Type: Other
  Country: CA (occurrence: CA)
  Receive Date: 20170824
  Receipt Date: 20170824
  Transmission Date: 20171127
  Serious: Yes (Death, Other)
  Sender: FDA-Public Use
  Company Number: CA-APOTEX-2017AP016762

PATIENT
  Age: 10 Year
  Sex: Female

DRUGS (1)
  1. APO-IMATINIB [Suspect]
     Active Substance: IMATINIB
     Indication: CHORDOMA
     Route: 065

REACTIONS (3)
  - Chordoma [Fatal]
  - Malignant neoplasm progression [Fatal]
  - Product use in unapproved indication [Fatal]
